FAERS Safety Report 20377200 (Version 1)
Quarter: 2022Q1

REPORT INFORMATION
  Report Type: Spontaneous
  Country: JP (occurrence: JP)
  Receive Date: 20220126
  Receipt Date: 20220126
  Transmission Date: 20220423
  Serious: Yes (Hospitalization)
  Sender: FDA-Public Use
  Company Number: JP-DSJP-DSJ-2022-101360

PATIENT
  Sex: Female

DRUGS (3)
  1. DENOSUMAB [Suspect]
     Active Substance: DENOSUMAB
     Indication: Product used for unknown indication
     Dosage: UNK
     Route: 065
  2. COVID-19 VACCINE [Concomitant]
     Dosage: UNK
     Route: 065
  3. COVID-19 VACCINE [Concomitant]
     Dosage: UNK
     Route: 065
     Dates: start: 202106, end: 202106

REACTIONS (2)
  - Cholelithiasis [Recovered/Resolved]
  - Back pain [Recovered/Resolved]

NARRATIVE: CASE EVENT DATE: 20210601
